FAERS Safety Report 6496695-1 (Version None)
Quarter: 2009Q4

REPORT INFORMATION
  Report Type: 
  Country: None (occurrence: None)
  Receive Date: 20091210
  Receipt Date: 20091126
  Transmission Date: 20100525
  Serious: Yes (Congenital Anomaly, Other)
  Sender: FDA-Public Use
  Company Number: 091207-0001210

PATIENT

DRUGS (1)
  1. SABRIL [Suspect]
     Indication: DRUG EXPOSURE DURING PREGNANCY
     Dosage: TRPL
     Route: 064

REACTIONS (2)
  - CONGENITAL NEUROLOGICAL DISORDER [None]
  - MATERNAL DRUGS AFFECTING FOETUS [None]
